FAERS Safety Report 9631643 (Version 6)
Quarter: 2015Q4

REPORT INFORMATION
  Report Type: Other
  Country: JP (occurrence: JP)
  Receive Date: 20131018
  Receipt Date: 20151230
  Transmission Date: 20160305
  Serious: Yes (Other)
  Sender: FDA-Public Use
  Company Number: JP-ASTELLAS-2013JP011083

PATIENT
  Age: 2 Year
  Sex: Female

DRUGS (6)
  1. INTAL [Concomitant]
     Active Substance: CROMOLYN SODIUM
     Indication: ANTIALLERGIC THERAPY
     Dosage: UNK UNK, UNKNOWN FREQ.
     Route: 048
  2. TACROLIMUS. [Suspect]
     Active Substance: TACROLIMUS
     Dosage: 0.1 MG/KG, ONCE DAILY
     Route: 048
  3. TACROLIMUS. [Suspect]
     Active Substance: TACROLIMUS
     Indication: IMMUNOSUPPRESSION
     Dosage: UNK UNK, UNKNOWN FREQ.
     Route: 048
  4. PREDNISOLONE. [Concomitant]
     Active Substance: PREDNISOLONE
     Indication: IMMUNOSUPPRESSION
     Dosage: UNK UNK, UNKNOWN FREQ.
     Route: 065
  5. PRANLUKAST [Concomitant]
     Active Substance: PRANLUKAST
     Indication: ANTIALLERGIC THERAPY
     Dosage: UNK UNK, UNKNOWN FREQ.
     Route: 048
  6. PREDNISOLONE. [Concomitant]
     Active Substance: PREDNISOLONE
     Dosage: UNK UNK, UNKNOWN FREQ.
     Route: 065

REACTIONS (3)
  - Food allergy [Recovering/Resolving]
  - Asthma [Recovering/Resolving]
  - Dermatitis atopic [Recovering/Resolving]
